FAERS Safety Report 8892354 (Version 7)
Quarter: 2013Q3

REPORT INFORMATION
  Report Type: Spontaneous
  Country: BE (occurrence: None)
  Receive Date: 20121101
  Receipt Date: 20130802
  Transmission Date: 20140515
  Serious: Yes (Hospitalization)
  Sender: FDA-Public Use
  Company Number: 2012-1112

PATIENT
  Age: 70 Year
  Sex: Male

DRUGS (18)
  1. CARFILZOMIB [Suspect]
     Indication: PLASMA CELL MYELOMA
     Dosage: 11.6 MG (40.6 MG, DAYS 1, 2), INTRAVENOUS
     Route: 042
     Dates: start: 20121011, end: 20121012
  2. DEXAMETHASONE [Suspect]
     Indication: PLASMA CELL MYELOMA
     Dosage: 5.7143 MG (20MG,DAYS 1,2,8,9,15,16,22,23, EVERY 28 DAYS),ORAL
     Route: 048
     Dates: start: 20121011
  3. ZANTAC(RANITIDINE HYDROCHLORIDE) [Concomitant]
  4. ULTRA MG [Concomitant]
  5. ZOMETA [Concomitant]
  6. STILNOCT [Concomitant]
  7. COLECALCIFEROL [Concomitant]
  8. OMEPRAZOLE [Concomitant]
  9. LITICAN [Concomitant]
  10. FOLIC ACID [Concomitant]
  11. BRUFEN RETARD [Concomitant]
  12. ASAFLOW [Concomitant]
  13. ACICLOVIR [Concomitant]
  14. DUROGESIC [Concomitant]
  15. OXYNORM [Concomitant]
  16. MORPHINE SULFATE [Concomitant]
  17. ACETAMINOPHEN [Concomitant]
  18. TRAMADOL HYDROCHLORIDE [Concomitant]

REACTIONS (6)
  - Abdominal pain [None]
  - Dyspnoea [None]
  - Back pain [None]
  - Blood pressure decreased [None]
  - Bronchitis [None]
  - Right ventricular failure [None]
